FAERS Safety Report 7308795-4 (Version None)
Quarter: 2011Q1

REPORT INFORMATION
  Report Type: 
  Country: None (occurrence: None)
  Receive Date: 20110223
  Receipt Date: 20110215
  Transmission Date: 20110831
  Serious: Yes (Other)
  Sender: FDA-Public Use
  Company Number: PHHY2011CN06840

PATIENT
  Sex: Female

DRUGS (3)
  1. LESCOL [Suspect]
     Indication: BLOOD CHOLESTEROL INCREASED
     Dosage: 40 MG, QD
     Route: 048
     Dates: start: 20101124
  2. QIANGGAN [Concomitant]
     Indication: HEPATIC STEATOSIS
     Dosage: UNK
     Route: 048
     Dates: start: 20101124, end: 20101213
  3. DANSHU [Concomitant]
     Indication: GALLBLADDER DISORDER
     Dosage: UNK
     Route: 048
     Dates: start: 20101207, end: 20101213

REACTIONS (3)
  - ASTHENIA [None]
  - JAUNDICE [None]
  - LIVER DISORDER [None]
